FAERS Safety Report 5907712-9 (Version None)
Quarter: 2008Q4

REPORT INFORMATION
  Report Type: 
  Country: None (occurrence: None)
  Receive Date: 20081003
  Receipt Date: 19870916
  Transmission Date: 20090506
  Serious: Yes (Death, Congenital Anomaly, Other)
  Sender: FDA-Public Use
  Company Number: US-ROCHE-870201099001

PATIENT

DRUGS (1)
  1. ACCUTANE [Suspect]
     Indication: DRUG USE FOR UNKNOWN INDICATION
     Route: 064
     Dates: start: 19840130, end: 19840203

REACTIONS (10)
  - BRAIN STEM SYNDROME [None]
  - CEREBELLAR HYPOPLASIA [None]
  - CEREBRAL VENTRICLE DILATATION [None]
  - CONVULSION [None]
  - DEATH [None]
  - DYSPHAGIA [None]
  - EYELID PTOSIS [None]
  - HYPERTONIA [None]
  - INFANTILE APNOEIC ATTACK [None]
  - PUPILLARY REFLEX IMPAIRED [None]
